FAERS Safety Report 8425674-X (Version None)
Quarter: 2012Q2

REPORT INFORMATION
  Report Type: 
  Country: None (occurrence: None)
  Receive Date: 20120611
  Receipt Date: 20120601
  Transmission Date: 20120825
  Serious: Yes (Other)
  Sender: FDA-Public Use
  Company Number: CA-JNJFOC-20120213898

PATIENT
  Sex: Male
  Weight: 87 kg

DRUGS (4)
  1. REMERON [Concomitant]
  2. REMICADE [Suspect]
     Indication: CROHN'S DISEASE
     Route: 042
     Dates: start: 20110405
  3. REMICADE [Suspect]
     Dosage: 7TH INFUSION
     Route: 042
     Dates: start: 20120101
  4. CHOLESTYRAMINE [Concomitant]

REACTIONS (2)
  - SKIN CANCER [None]
  - STAPHYLOCOCCAL INFECTION [None]
